FAERS Safety Report 4651045-8 (Version None)
Quarter: 2005Q2

REPORT INFORMATION
  Report Type: 
  Country: None (occurrence: None)
  Receive Date: 20050429
  Receipt Date: 20050419
  Transmission Date: 20051028
  Serious: Yes (Hospitalization)
  Sender: FDA-Public Use
  Company Number: 2005063695

PATIENT
  Sex: Female

DRUGS (3)
  1. BEXTRA [Suspect]
     Indication: ILL-DEFINED DISORDER
     Dosage: 20 MG (20 MG, 1 IN 1 D), UNKNOWN
     Route: 065
  2. BEXTRA [Suspect]
     Indication: PAIN
     Dosage: 20 MG (20 MG, 1 IN 1 D), UNKNOWN
     Route: 065
  3. BEXTRA [Suspect]
     Indication: SCIATICA
     Dosage: 20 MG (20 MG, 1 IN 1 D), UNKNOWN
     Route: 065

REACTIONS (2)
  - RASH PRURITIC [None]
  - URTICARIA [None]
